FAERS Safety Report 8888801 (Version 1)
Quarter: 2012Q4

REPORT INFORMATION
  Report Type: 
  Country: GB (occurrence: GB)
  Receive Date: 20121106
  Receipt Date: 20121106
  Transmission Date: 20130627
  Serious: Yes (Other)
  Sender: FDA-Public Use
  Company Number: PHHY2012GB099703

PATIENT
  Age: 56 Year
  Sex: Male
  Weight: 59.85 kg

DRUGS (21)
  1. TRAMADOL [Suspect]
     Indication: ANALGESIC THERAPY
     Dosage: 100 mg, UNK
     Route: 048
     Dates: start: 20121018, end: 20121022
  2. NEFOPAM [Suspect]
     Indication: ANALGESIC THERAPY
     Dosage: 30 mg, TID
     Route: 048
     Dates: start: 20121015, end: 20121022
  3. BECLOMETASONE [Concomitant]
  4. SALMETEROL [Concomitant]
  5. PARACETAMOL [Concomitant]
  6. TINZAPARIN [Concomitant]
  7. TIGECYCLINE [Concomitant]
  8. FORTISIP [Concomitant]
  9. METRONIDAZOLE [Concomitant]
  10. OXYCODONE [Concomitant]
  11. MORPHINE SULPHATE [Concomitant]
  12. SALBUTAMOL [Concomitant]
  13. ONDANSETRON [Concomitant]
  14. CYCLIZINE [Concomitant]
  15. TEICOPLANIN [Concomitant]
  16. LOPERAMIDE [Concomitant]
  17. DIORALYTE [Concomitant]
  18. CODEINE [Concomitant]
  19. HYOSCINE BUTYLBROMIDE [Concomitant]
  20. MEBEVERINE [Concomitant]
  21. PEPPERMINT OIL [Concomitant]

REACTIONS (2)
  - Visual acuity reduced [Unknown]
  - Vision blurred [Unknown]
